FAERS Safety Report 4488843-X (Version None)
Quarter: 2004Q4

REPORT INFORMATION
  Report Type: 
  Country: None (occurrence: None)
  Receive Date: 20041029
  Receipt Date: 20041018
  Transmission Date: 20050328
  Serious: Yes (Hospitalization, Disabling)
  Sender: FDA-Public Use
  Company Number: FR-MERCK-0410FRA00069

PATIENT
  Age: 73 Year
  Sex: Female

DRUGS (4)
  1. VIOXX [Suspect]
     Indication: OSTEOARTHRITIS
     Route: 048
     Dates: start: 20010918, end: 20030707
  2. NAFTAZONE [Concomitant]
     Indication: VENOUS INSUFFICIENCY
     Route: 048
  3. AVOCADO OIL AND SOYBEAN OIL [Concomitant]
     Indication: OSTEOARTHRITIS
     Route: 048
  4. LEVOTHYROXINE SODIUM [Concomitant]
     Indication: HYPOTHYROIDISM
     Route: 048

REACTIONS (2)
  - CEREBROVASCULAR ACCIDENT [None]
  - COMA [None]
